FAERS Safety Report 8520241-1 (Version None)
Quarter: 2012Q3

REPORT INFORMATION
  Report Type: 
  Country: None (occurrence: None)
  Receive Date: 20120719
  Receipt Date: 20120709
  Transmission Date: 20120928
  Serious: Yes (Other)
  Sender: FDA-Public Use
  Company Number: GB-JNJFOC-20120704172

PATIENT
  Age: 38 Year
  Sex: Female
  Weight: 42 kg

DRUGS (2)
  1. TOPAMAX [Suspect]
     Indication: EPILEPSY
     Route: 048
  2. CLONAZEPAM [Concomitant]
     Indication: PRODUCT USED FOR UNKNOWN INDICATION
     Route: 065

REACTIONS (8)
  - DEPRESSION [None]
  - DYSGEUSIA [None]
  - EMOTIONAL POVERTY [None]
  - BREATH ODOUR [None]
  - DECREASED APPETITE [None]
  - WEIGHT DECREASED [None]
  - SENSITIVITY OF TEETH [None]
  - TOOTH LOSS [None]
